FAERS Safety Report 8401643-0 (Version None)
Quarter: 2012Q2

REPORT INFORMATION
  Report Type: 
  Country: None (occurrence: None)
  Receive Date: 20120601
  Receipt Date: 20120529
  Transmission Date: 20120825
  Serious: Yes (Hospitalization, Other)
  Sender: FDA-Public Use
  Company Number: PHHY2009CA24126

PATIENT
  Sex: Male

DRUGS (7)
  1. SANDOSTATIN LAR [Suspect]
     Dosage: 50 MG, EVERY 4 WEEKS
     Route: 030
  2. DIGOXIN [Concomitant]
  3. SANDOSTATIN LAR [Suspect]
     Indication: CARCINOID TUMOUR
     Dosage: 30 MG, QMO
     Route: 030
     Dates: start: 20050505
  4. SANDOSTATIN LAR [Suspect]
     Dosage: 40 MG, EVERY 4 WEEKS
     Route: 030
  5. SANDOSTATIN LAR [Suspect]
     Dosage: 60 MG, EVERY 4 WEEKS
     Route: 030
  6. METOPROLOL TARTRATE [Suspect]
  7. VITALUX [Concomitant]

REACTIONS (31)
  - MUSCULOSKELETAL STIFFNESS [None]
  - FLUSHING [None]
  - BLOOD PRESSURE SYSTOLIC INCREASED [None]
  - INJECTION SITE MASS [None]
  - DIARRHOEA [None]
  - PAIN IN EXTREMITY [None]
  - ARTHRALGIA [None]
  - WRONG TECHNIQUE IN DRUG USAGE PROCESS [None]
  - DIZZINESS [None]
  - HEART RATE IRREGULAR [None]
  - SWELLING [None]
  - OEDEMA PERIPHERAL [None]
  - HOT FLUSH [None]
  - INJECTION SITE SCAR [None]
  - MALAISE [None]
  - PALLOR [None]
  - SKIN WARM [None]
  - VOMITING [None]
  - TENDERNESS [None]
  - PERIORBITAL HAEMATOMA [None]
  - CONTUSION [None]
  - ERYTHEMA [None]
  - BRADYCARDIA [None]
  - GAIT DISTURBANCE [None]
  - HYPERHIDROSIS [None]
  - NAUSEA [None]
  - FALL [None]
  - INJECTION SITE HAEMORRHAGE [None]
  - BALANCE DISORDER [None]
  - SKIN EXFOLIATION [None]
  - FATIGUE [None]
